FAERS Safety Report 22282036 (Version 2)
Quarter: 2023Q2

REPORT INFORMATION
  Report Type: Report from Study
  Country: GB (occurrence: GB)
  Receive Date: 20230504
  Receipt Date: 20230519
  Transmission Date: 20230721
  Serious: Yes (Other)
  Sender: FDA-Public Use
  Company Number: GB-002147023-NVSC2023GB098322

PATIENT
  Age: 8 Year
  Sex: Male

DRUGS (1)
  1. OMNITROPE [Suspect]
     Active Substance: SOMATROPIN
     Indication: Product used for unknown indication
     Dosage: 1.0 MG, QD
     Route: 058
     Dates: start: 20230417

REACTIONS (4)
  - Autism spectrum disorder [Unknown]
  - Injection site pain [Unknown]
  - Device difficult to use [Unknown]
  - Drug dose omission by device [Unknown]
